FAERS Safety Report 7489902-X (Version None)
Quarter: 2011Q2

REPORT INFORMATION
  Report Type: 
  Country: None (occurrence: None)
  Receive Date: 20110512
  Receipt Date: 20110502
  Transmission Date: 20111010
  Serious: Yes (Other)
  Sender: FDA-Public Use
  Company Number: 1000020761

PATIENT
  Sex: Male
  Weight: 3.24 kg

DRUGS (4)
  1. ESCITALOPRAM [Suspect]
     Dosage: 20 MG (20 MG, 1 IN 1 D), TRANSPLACENTAL
     Route: 064
     Dates: end: 20100914
  2. ZYPREXA [Suspect]
     Dosage: 2.5 MG (2.5 MG, 1 IN 1 D), TRANSPLACENTAL
     Route: 064
     Dates: end: 20100914
  3. DIAZEPAM [Concomitant]
  4. FOLIC ACID [Concomitant]

REACTIONS (2)
  - MATERNAL DRUGS AFFECTING FOETUS [None]
  - NEONATAL RESPIRATORY DISTRESS SYNDROME [None]
